FAERS Safety Report 7740810-6 (Version None)
Quarter: 2011Q3

REPORT INFORMATION
  Report Type: 
  Country: None (occurrence: None)
  Receive Date: 20110909
  Receipt Date: 20110831
  Transmission Date: 20111222
  Serious: Yes (Life-Threatening)
  Sender: FDA-Public Use
  Company Number: PL-TYCO HEALTHCARE/MALLINCKRODT-T201101683

PATIENT
  Sex: Female
  Weight: 70 kg

DRUGS (3)
  1. OPTIRAY 160 [Suspect]
     Indication: COMPUTERISED TOMOGRAM
     Dosage: 90 ML, SINGLE
     Route: 042
     Dates: start: 20110810, end: 20110810
  2. CLEMASTINUM [Concomitant]
     Indication: PREMEDICATION
     Dosage: 1 MG, UNK
  3. DEXAMETHASONE [Concomitant]
     Indication: PREMEDICATION
     Dosage: 8 MG, UNK

REACTIONS (3)
  - HYPERSENSITIVITY [None]
  - FEELING COLD [None]
  - CHILLS [None]
